FAERS Safety Report 5723868-5 (Version None)
Quarter: 2008Q2

REPORT INFORMATION
  Report Type: 
  Country: None (occurrence: None)
  Receive Date: 20080429
  Receipt Date: 20080429
  Transmission Date: 20081010
  Serious: Yes (Hospitalization)
  Sender: FDA-Public Use
  Company Number: None

PATIENT
  Age: 67 Year
  Sex: Female
  Weight: 83 kg

DRUGS (1)
  1. CARBAMAZEPINE [Suspect]
     Indication: TRIGEMINAL NEURALGIA
     Dates: start: 20071101, end: 20080120

REACTIONS (8)
  - DRUG ERUPTION [None]
  - ERYTHEMA [None]
  - MOUTH ULCERATION [None]
  - MUCOSAL INFLAMMATION [None]
  - ODYNOPHAGIA [None]
  - OESOPHAGITIS [None]
  - PHARYNGITIS STREPTOCOCCAL [None]
  - PYREXIA [None]
